FAERS Safety Report 12599434 (Version 2)
Quarter: 2016Q3

REPORT INFORMATION
  Report Type: Spontaneous
  Country: US (occurrence: US)
  Receive Date: 20160727
  Receipt Date: 20160802
  Transmission Date: 20161109
  Serious: Yes (Other)
  Sender: FDA-Public Use
  Company Number: US-PFIZER INC-2016360605

PATIENT
  Age: 67 Year
  Sex: Female
  Weight: 54 kg

DRUGS (1)
  1. ADVIL [Suspect]
     Active Substance: IBUPROFEN
     Indication: BACK PAIN
     Dosage: 2 DF, 4X/DAY
     Route: 048
     Dates: start: 2016, end: 20160719

REACTIONS (3)
  - Product use issue [Unknown]
  - Liver disorder [Not Recovered/Not Resolved]
  - Liver function test increased [Not Recovered/Not Resolved]

NARRATIVE: CASE EVENT DATE: 2016
